FAERS Safety Report 24345296 (Version 1)
Quarter: 2024Q3

REPORT INFORMATION
  Report Type: Spontaneous
  Country: CH (occurrence: CH)
  Receive Date: 20240920
  Receipt Date: 20240920
  Transmission Date: 20241016
  Serious: Yes (Life-Threatening, Hospitalization, Other)
  Sender: MEITHEAL PHARMACEUTICALS
  Company Number: CH-MEITHEAL-2024MPLIT00288

PATIENT
  Age: 61 Year
  Sex: Female

DRUGS (4)
  1. ETOPOSIDE [Suspect]
     Active Substance: ETOPOSIDE
     Indication: Small cell lung cancer
     Route: 065
  2. ETOPOSIDE [Suspect]
     Active Substance: ETOPOSIDE
     Indication: Metastases to central nervous system
     Dosage: ADMINISTERED IN TWO MORE CYCLES
     Route: 065
  3. CISPLATIN [Suspect]
     Active Substance: CISPLATIN
     Indication: Small cell lung cancer
     Dosage: SECOND CYCLE
     Route: 065
     Dates: start: 201911
  4. CISPLATIN [Suspect]
     Active Substance: CISPLATIN
     Indication: Metastases to central nervous system
     Dosage: DOSE PROTOCOL
     Route: 065
     Dates: start: 201911

REACTIONS (2)
  - Cardio-respiratory arrest [Unknown]
  - Haematotoxicity [Unknown]
